FAERS Safety Report 7460793-6 (Version None)
Quarter: 2011Q2

REPORT INFORMATION
  Report Type: 
  Country: None (occurrence: None)
  Receive Date: 20110427
  Receipt Date: 20110418
  Transmission Date: 20111010
  Serious: Yes (Hospitalization, Other)
  Sender: FDA-Public Use
  Company Number: DKLU1069233

PATIENT
  Age: 18 Month
  Sex: 0

DRUGS (6)
  1. SABRIL [Suspect]
     Indication: INFANTILE SPASMS
     Dosage: SEWE IMAGE
     Route: 048
     Dates: start: 20110311
  2. SABRIL [Suspect]
     Indication: INFANTILE SPASMS
     Dosage: SEWE IMAGE
     Route: 048
     Dates: start: 20100617
  3. SABRIL [Suspect]
     Indication: INFANTILE SPASMS
     Dosage: SEWE IMAGE
     Route: 048
     Dates: start: 20110311
  4. ACTH [Concomitant]
  5. TOPAMAX [Concomitant]
  6. CLONAZEPAM [Concomitant]

REACTIONS (4)
  - CONVULSION [None]
  - RESPIRATORY DISORDER [None]
  - CONDITION AGGRAVATED [None]
  - DRUG INEFFECTIVE [None]
